FAERS Safety Report 13118403 (Version 1)
Quarter: 2017Q1

REPORT INFORMATION
  Report Type: Spontaneous
  Country: IN (occurrence: IN)
  Receive Date: 20170116
  Receipt Date: 20170116
  Transmission Date: 20170428
  Serious: Yes (Other)
  Sender: FDA-Public Use
  Company Number: IN-MYLANLABS-2017M1002200

PATIENT

DRUGS (2)
  1. CLOZAPINE. [Suspect]
     Active Substance: CLOZAPINE
     Indication: SCHIZOPHRENIA
     Dosage: 200 MG, QD
  2. CLOZAPINE. [Suspect]
     Active Substance: CLOZAPINE
     Dosage: 150 MG, QD

REACTIONS (5)
  - Restlessness [Recovering/Resolving]
  - Schizophrenia [Unknown]
  - Akathisia [Recovered/Resolved]
  - Paraesthesia [Recovering/Resolving]
  - Restless legs syndrome [Recovering/Resolving]
